FAERS Safety Report 14861366 (Version 1)
Quarter: 2018Q2

REPORT INFORMATION
  Report Type: Spontaneous
  Country: FR (occurrence: FR)
  Receive Date: 20180508
  Receipt Date: 20180508
  Transmission Date: 20180711
  Serious: Yes (Hospitalization)
  Sender: FDA-Public Use
  Company Number: FR-TEVA-2018-FR-890922

PATIENT
  Age: 8 Year
  Sex: Male
  Weight: 28 kg

DRUGS (5)
  1. DOXORUBICINE TEVA [Suspect]
     Active Substance: DOXORUBICIN
     Indication: ACUTE LEUKAEMIA
     Route: 041
  2. HYDROCORTISONE. [Concomitant]
     Active Substance: HYDROCORTISONE
     Route: 037
  3. CYTARABINE. [Concomitant]
     Active Substance: CYTARABINE
     Route: 037
  4. VINCRISTINE [Suspect]
     Active Substance: VINCRISTINE
     Indication: ACUTE LEUKAEMIA
     Route: 040
  5. METHOTREXATE. [Concomitant]
     Active Substance: METHOTREXATE
     Route: 037

REACTIONS (1)
  - Mucosal inflammation [Recovered/Resolved]
